FAERS Safety Report 11446911 (Version 1)
Quarter: 2015Q3

REPORT INFORMATION
  Report Type: Spontaneous
  Country: US (occurrence: US)
  Receive Date: 20150831
  Receipt Date: 20150831
  Transmission Date: 20151125
  Serious: No
  Sender: FDA-Public Use
  Company Number: US-ELI_LILLY_AND_COMPANY-US200811005165

PATIENT
  Age: 46 Year
  Sex: Female

DRUGS (4)
  1. CYMBALTA [Suspect]
     Active Substance: DULOXETINE HYDROCHLORIDE
     Dosage: 30 MG, DAILY (1/D)
  2. CYMBALTA [Suspect]
     Active Substance: DULOXETINE HYDROCHLORIDE
     Dosage: 30 MG, QOD
     Dates: end: 200811
  3. CYMBALTA [Suspect]
     Active Substance: DULOXETINE HYDROCHLORIDE
     Dosage: 60 MG, DAILY (1/D)
  4. CYMBALTA [Suspect]
     Active Substance: DULOXETINE HYDROCHLORIDE
     Indication: PAIN
     Dosage: 1 D/F, UNK

REACTIONS (13)
  - Drug withdrawal syndrome [Not Recovered/Not Resolved]
  - Vision blurred [Recovering/Resolving]
  - Neck pain [Recovering/Resolving]
  - Mental impairment [Not Recovered/Not Resolved]
  - Dizziness [Recovering/Resolving]
  - Diplopia [Not Recovered/Not Resolved]
  - Nausea [Unknown]
  - Hyperhidrosis [Recovering/Resolving]
  - Somnolence [Recovering/Resolving]
  - Influenza like illness [Recovering/Resolving]
  - Dry eye [Not Recovered/Not Resolved]
  - Paraesthesia [Recovering/Resolving]
  - Mood swings [Recovering/Resolving]

NARRATIVE: CASE EVENT DATE: 200811
